FAERS Safety Report 6975035-5 (Version None)
Quarter: 2010Q3

REPORT INFORMATION
  Report Type: 
  Country: None (occurrence: None)
  Receive Date: 20100910
  Receipt Date: 20090127
  Transmission Date: 20110219
  Serious: No
  Sender: FDA-Public Use
  Company Number: US-WYE-H07958209

PATIENT
  Sex: Female
  Weight: 74.91 kg

DRUGS (4)
  1. PRISTIQ [Suspect]
     Indication: DEPRESSION
     Route: 048
     Dates: start: 20090101, end: 20090101
  2. PRISTIQ [Suspect]
     Route: 048
     Dates: start: 20090101, end: 20090125
  3. LOTREL [Concomitant]
  4. NEXIUM [Concomitant]

REACTIONS (1)
  - DIARRHOEA [None]
